FAERS Safety Report 8402994 (Version 2)
Quarter: 2014Q4

REPORT INFORMATION
  Report Type: Spontaneous
  Country: US (occurrence: US)
  Receive Date: 20120213
  Receipt Date: 20141104
  Transmission Date: 20150529
  Serious: Yes (Hospitalization, Other)
  Sender: FDA-Public Use
  Company Number: US-GLAXOSMITHKLINE-B0723330A

PATIENT
  Sex: Male

DRUGS (1)
  1. AVANDIA [Suspect]
     Active Substance: ROSIGLITAZONE MALEATE
     Indication: DIABETES MELLITUS
     Dosage: 4 MG, UNK
     Route: 048
     Dates: start: 20070110, end: 20080415

REACTIONS (10)
  - Open angle glaucoma [Unknown]
  - Myocardial infarction [Unknown]
  - Corneal disorder [Unknown]
  - Cardiac murmur [Unknown]
  - Blindness unilateral [Unknown]
  - Cerebrovascular accident [Not Recovered/Not Resolved]
  - Infarction [Unknown]
  - Visual field defect [Unknown]
  - Retinal degeneration [Unknown]
  - Glaucoma [Unknown]
